FAERS Safety Report 14085094 (Version 1)
Quarter: 2017Q4

REPORT INFORMATION
  Report Type: Spontaneous
  Country: US (occurrence: US)
  Receive Date: 20171013
  Receipt Date: 20171013
  Transmission Date: 20180321
  Serious: Yes (Hospitalization, Other)
  Sender: FDA-Public Use
  Company Number: US-TORRENT-00003494

PATIENT
  Age: 28 Year
  Sex: Male

DRUGS (9)
  1. BUPROPION. [Concomitant]
     Active Substance: BUPROPION
  2. CYCLOBENZAPRINE. [Concomitant]
     Active Substance: CYCLOBENZAPRINE
  3. SERTRALINE [Suspect]
     Active Substance: SERTRALINE HYDROCHLORIDE
  4. BUPROPION. [Concomitant]
     Active Substance: BUPROPION
  5. PRAZOSIN. [Concomitant]
     Active Substance: PRAZOSIN
  6. SILDENAFIL. [Concomitant]
     Active Substance: SILDENAFIL
  7. HYDROXYZINE HYDROCHLORIDE. [Concomitant]
     Active Substance: HYDROXYZINE HYDROCHLORIDE
  8. DIVALPROEX ER [Concomitant]
     Active Substance: DIVALPROEX SODIUM
  9. 5-HYDROXYTRYPTOPHAN [Interacting]
     Active Substance: OXITRIPTAN

REACTIONS (5)
  - Drug interaction [Recovered/Resolved]
  - Rhabdomyolysis [Recovered/Resolved]
  - Compartment syndrome [Recovered/Resolved]
  - Serotonin syndrome [Recovered/Resolved]
  - Food interaction [Recovered/Resolved]
